FAERS Safety Report 10911331 (Version 2)
Quarter: 2015Q1

REPORT INFORMATION
  Report Type: Spontaneous
  Country: DZ (occurrence: DZ)
  Receive Date: 20150313
  Receipt Date: 20150326
  Transmission Date: 20150721
  Serious: Yes (Life-Threatening)
  Sender: FDA-Public Use
  Company Number: PHHY2015DZ029080

PATIENT
  Age: 70 Year
  Sex: Male

DRUGS (3)
  1. FORADIL [Suspect]
     Active Substance: FORMOTEROL FUMARATE
     Indication: CHRONIC OBSTRUCTIVE PULMONARY DISEASE
     Dosage: 1 DF, BID
     Route: 055
     Dates: start: 20070401, end: 20150301
  2. STILNOX [Concomitant]
     Active Substance: ZOLPIDEM TARTRATE
     Indication: INSOMNIA
     Dosage: 10 MG
     Route: 048
     Dates: start: 20110606
  3. VALSARTAN AND HYDROCHLOROTHIAZIDE [Concomitant]
     Active Substance: HYDROCHLOROTHIAZIDE\VALSARTAN
     Indication: HYPERTENSION
     Dosage: 1 DF
     Route: 065
     Dates: start: 201312

REACTIONS (6)
  - Ischaemic cardiomyopathy [Unknown]
  - Ventricular hypokinesia [Unknown]
  - Fatigue [Unknown]
  - Arrhythmia [Unknown]
  - Dyspnoea [Unknown]
  - Angina pectoris [Unknown]

NARRATIVE: CASE EVENT DATE: 20141215
